FAERS Safety Report 7376914-X (Version None)
Quarter: 2011Q1

REPORT INFORMATION
  Report Type: 
  Country: None (occurrence: None)
  Receive Date: 20110327
  Receipt Date: 20110301
  Transmission Date: 20110831
  Serious: Yes (Other)
  Sender: FDA-Public Use
  Company Number: US-BAYER-201018743NA

PATIENT
  Sex: Male
  Weight: 77 kg

DRUGS (29)
  1. GADOLINIUM IN UNSPECIFIED DRUG [Suspect]
     Dosage: UNK
     Dates: start: 20020410, end: 20020410
  2. GENGRAF [Concomitant]
  3. NEORAL [Concomitant]
  4. NEUTRA-PHOS [Concomitant]
  5. ALTACE [Concomitant]
  6. MONOPRIL [Concomitant]
  7. MAGNEVIST [Suspect]
     Indication: IMAGING PROCEDURE
  8. OPTIMARK [Suspect]
     Indication: IMAGING PROCEDURE
  9. PROHANCE [Suspect]
     Indication: IMAGING PROCEDURE
  10. GADOLINIUM IN UNSPECIFIED DRUG [Suspect]
     Dosage: UNK
     Dates: start: 20040701, end: 20040701
  11. ENALAPRIL MALEATE [Concomitant]
  12. PLAVIX [Concomitant]
  13. CELL CEPT [Concomitant]
  14. RAPAMUNE [Concomitant]
  15. BACTRIM [Concomitant]
  16. VICODIN [Concomitant]
  17. PLENDIL [Concomitant]
  18. OMNISCAN [Suspect]
     Indication: IMAGING PROCEDURE
  19. GADOLINIUM IN UNSPECIFIED DRUG [Suspect]
     Dosage: UNK
     Dates: start: 20040718, end: 20040718
  20. FELODIPINE [Concomitant]
  21. NEPHROVITE [VIT C,VIT H,B5,B12,B9,B3,B6,B2,B1 HCL] [Concomitant]
  22. NEXIUM [Concomitant]
  23. METOPROLOL [Concomitant]
  24. RENAGEL [Concomitant]
  25. PREDNISONE [Concomitant]
  26. ZOLOFT [Concomitant]
  27. OSCAL [Concomitant]
  28. MULTIHANCE [Suspect]
     Indication: IMAGING PROCEDURE
  29. ASPIRIN [Concomitant]

REACTIONS (12)
  - PAIN [None]
  - DEFORMITY [None]
  - SCAR [None]
  - MOBILITY DECREASED [None]
  - OEDEMA [None]
  - RASH PAPULAR [None]
  - SKIN INDURATION [None]
  - NEPHROGENIC SYSTEMIC FIBROSIS [None]
  - SKIN TIGHTNESS [None]
  - GENERAL PHYSICAL HEALTH DETERIORATION [None]
  - FIBROSIS [None]
  - SKIN HYPERTROPHY [None]
